FAERS Safety Report 4695048-6 (Version None)
Quarter: 2005Q2

REPORT INFORMATION
  Report Type: 
  Country: None (occurrence: None)
  Receive Date: 20050617
  Receipt Date: 20050606
  Transmission Date: 20051028
  Serious: Yes (Death, Other)
  Sender: FDA-Public Use
  Company Number: 081-0802-M0200001

PATIENT
  Age: 68 Year
  Sex: Female
  Weight: 37 kg

DRUGS (21)
  1. ALDACTONE [Suspect]
     Indication: URINARY RETENTION
     Dosage: SEE IMAGE
     Route: 048
     Dates: start: 20020411, end: 20020411
  2. ALDACTONE [Suspect]
     Indication: URINARY RETENTION
     Dosage: SEE IMAGE
     Route: 048
     Dates: start: 20020412, end: 20020501
  3. DILTIAZEM [Suspect]
     Indication: ANGINA PECTORIS
     Dosage: SEE IMAGE
     Route: 048
     Dates: start: 20020411, end: 20020416
  4. DILTIAZEM [Suspect]
     Indication: PROPHYLAXIS
     Dosage: SEE IMAGE
     Route: 048
     Dates: start: 20020411, end: 20020416
  5. DILTIAZEM [Suspect]
     Indication: ANGINA PECTORIS
     Dosage: SEE IMAGE
     Route: 048
     Dates: start: 20020417, end: 20020430
  6. DILTIAZEM [Suspect]
     Indication: PROPHYLAXIS
     Dosage: SEE IMAGE
     Route: 048
     Dates: start: 20020417, end: 20020430
  7. DILTIAZEM [Suspect]
     Indication: ANGINA PECTORIS
     Dosage: SEE IMAGE
     Route: 048
     Dates: start: 20020501, end: 20020501
  8. DILTIAZEM [Suspect]
     Indication: PROPHYLAXIS
     Dosage: SEE IMAGE
     Route: 048
     Dates: start: 20020501, end: 20020501
  9. DILTIAZEM HYDROCHLORIDE [Suspect]
     Indication: MUSCLE SPASMS
     Dosage: 3 MG/HR, INTRAVENOUS
     Route: 042
     Dates: start: 20020409, end: 20020411
  10. DIGOXIN [Suspect]
     Indication: CARDIAC FUNCTION DISTURBANCE POSTOPERATIVE
     Dosage: ORAL
     Route: 048
     Dates: end: 20020426
  11. OMEPRAZOLE [Suspect]
     Indication: DUODENAL ULCER
     Dosage: SEE IMAGE
     Route: 048
     Dates: start: 20020411, end: 20020411
  12. OMEPRAZOLE [Suspect]
     Indication: GASTRIC ULCER
     Dosage: SEE IMAGE
     Route: 048
     Dates: start: 20020411, end: 20020411
  13. OMEPRAZOLE [Suspect]
     Indication: DUODENAL ULCER
     Dosage: SEE IMAGE
     Route: 048
     Dates: start: 20020412, end: 20020501
  14. OMEPRAZOLE [Suspect]
     Indication: GASTRIC ULCER
     Dosage: SEE IMAGE
     Route: 048
     Dates: start: 20020412, end: 20020501
  15. ISOSORBIDE MONONITRATE [Suspect]
     Indication: ANGINA PECTORIS
     Dosage: 40 MG (DAILY), ORAL
     Route: 048
     Dates: start: 20020411, end: 20020501
  16. WARFARIN SODIUM [Suspect]
     Indication: COAGULOPATHY
     Dosage: 1.5 MG (DAILY), ORAL
     Route: 048
     Dates: start: 20020411, end: 20020514
  17. LASIX [Suspect]
     Indication: POLYURIA
     Dosage: SEE IMAGE
     Route: 048
     Dates: start: 20020412, end: 20020501
  18. LASIX [Suspect]
     Indication: POLYURIA
     Dosage: SEE IMAGE
     Route: 048
     Dates: start: 20020411
  19. SELBEX (TEPRENONE) [Suspect]
     Indication: GASTROINTESTINAL DISORDER
     Dosage: 150 MG (QD), ORAL
     Route: 048
     Dates: start: 20020416, end: 20020501
  20. SIGMART (NICORANDIL) [Suspect]
     Indication: ANGINA PECTORIS
     Dosage: 15 MG (QD), ORAL
     Route: 048
     Dates: start: 20020417, end: 20020501
  21. MAGNESIUM SULFATE [Concomitant]

REACTIONS (55)
  - ALANINE AMINOTRANSFERASE INCREASED [None]
  - ASPARTATE AMINOTRANSFERASE INCREASED [None]
  - ASPIRATION [None]
  - ATRIAL FIBRILLATION [None]
  - BLOOD ALBUMIN DECREASED [None]
  - BLOOD CHLORIDE DECREASED [None]
  - BLOOD CHLORIDE INCREASED [None]
  - BLOOD CHOLESTEROL INCREASED [None]
  - BLOOD CREATINE PHOSPHOKINASE INCREASED [None]
  - BLOOD CREATININE INCREASED [None]
  - BLOOD GASES ABNORMAL [None]
  - BLOOD GLUCOSE INCREASED [None]
  - BLOOD LACTATE DEHYDROGENASE INCREASED [None]
  - BLOOD POTASSIUM DECREASED [None]
  - BLOOD PRESSURE FLUCTUATION [None]
  - BLOOD PRESSURE INADEQUATELY CONTROLLED [None]
  - BLOOD PRESSURE SYSTOLIC INCREASED [None]
  - BLOOD SODIUM DECREASED [None]
  - BLOOD SODIUM INCREASED [None]
  - BLOOD UREA INCREASED [None]
  - BRADYCARDIA [None]
  - BRAIN OEDEMA [None]
  - C-REACTIVE PROTEIN INCREASED [None]
  - CARDIO-RESPIRATORY ARREST [None]
  - CEREBELLAR HAEMORRHAGE [None]
  - CEREBRAL HAEMORRHAGE [None]
  - CULTURE STOOL POSITIVE [None]
  - DIFFERENTIAL WHITE BLOOD CELL COUNT ABNORMAL [None]
  - DISCOMFORT [None]
  - DRUG INEFFECTIVE [None]
  - DRUG INTERACTION [None]
  - DRUG LEVEL INCREASED [None]
  - GASTROINTESTINAL HAEMORRHAGE [None]
  - HAEMATOCRIT DECREASED [None]
  - HAEMOGLOBIN DECREASED [None]
  - HAEMORRHAGIC INFARCTION [None]
  - HEART RATE INCREASED [None]
  - HYPERCATABOLISM [None]
  - HYPOTENSION [None]
  - HYPOTHERMIA [None]
  - LOSS OF CONSCIOUSNESS [None]
  - MALAISE [None]
  - MYOCARDIAL INFARCTION [None]
  - NODAL RHYTHM [None]
  - PLATELET COUNT INCREASED [None]
  - PROTEIN TOTAL DECREASED [None]
  - RED BLOOD CELL COUNT DECREASED [None]
  - RENAL IMPAIRMENT [None]
  - RESPIRATORY ARREST [None]
  - SPUTUM CULTURE POSITIVE [None]
  - STAPHYLOCOCCAL INFECTION [None]
  - THERAPEUTIC RESPONSE DECREASED [None]
  - UNRESPONSIVE TO PAIN STIMULI [None]
  - VENTRICULAR EXTRASYSTOLES [None]
  - WHITE BLOOD CELL COUNT INCREASED [None]
